FAERS Safety Report 8937011 (Version 3)
Quarter: 2014Q2

REPORT INFORMATION
  Report Type: Spontaneous
  Country: US (occurrence: US)
  Receive Date: 20121130
  Receipt Date: 20140407
  Transmission Date: 20141212
  Serious: Yes (Hospitalization, Other)
  Sender: FDA-Public Use
  Company Number: US-AMGEN-USASP2012076494

PATIENT
  Age: 61 Year
  Sex: Female
  Weight: 97.5 kg

DRUGS (6)
  1. ENBREL [Suspect]
     Indication: RHEUMATOID ARTHRITIS
     Dosage: 50 MG, QWK
     Route: 058
     Dates: start: 20120619
  2. ENBREL [Suspect]
     Dosage: UNK
     Route: 065
  3. ENBREL [Suspect]
     Dosage: UNK
     Route: 065
  4. METHOTREXATE [Concomitant]
     Dosage: UNK
     Dates: start: 20120619, end: 20121112
  5. PLAQUENIL                          /00072602/ [Concomitant]
     Dosage: 200 MG ONE TABLET DAILY
  6. MOLIN [Concomitant]
     Dosage: UNK
     Dates: start: 20120619, end: 20121112

REACTIONS (33)
  - Concussion [Recovered/Resolved]
  - Rectocele [Recovered/Resolved]
  - Extraocular muscle paresis [Not Recovered/Not Resolved]
  - Impaired healing [Recovered/Resolved]
  - Post procedural haemorrhage [Recovered/Resolved]
  - Tooth abscess [Recovered/Resolved]
  - Asthenia [Not Recovered/Not Resolved]
  - Fatigue [Not Recovered/Not Resolved]
  - Arthritis [Not Recovered/Not Resolved]
  - Musculoskeletal stiffness [Not Recovered/Not Resolved]
  - Fall [Unknown]
  - Headache [Not Recovered/Not Resolved]
  - Balance disorder [Not Recovered/Not Resolved]
  - Vision blurred [Not Recovered/Not Resolved]
  - Diplopia [Not Recovered/Not Resolved]
  - Dizziness [Not Recovered/Not Resolved]
  - Sputum discoloured [Not Recovered/Not Resolved]
  - Cough [Not Recovered/Not Resolved]
  - Nasal congestion [Not Recovered/Not Resolved]
  - Pyrexia [Not Recovered/Not Resolved]
  - Chills [Not Recovered/Not Resolved]
  - Ear pain [Recovered/Resolved]
  - Memory impairment [Not Recovered/Not Resolved]
  - Disturbance in attention [Not Recovered/Not Resolved]
  - Mobility decreased [Not Recovered/Not Resolved]
  - Asthenopia [Not Recovered/Not Resolved]
  - Condition aggravated [Recovered/Resolved]
  - Pain [Recovered/Resolved]
  - Tooth fracture [Recovered/Resolved]
  - Post procedural discharge [Recovered/Resolved]
  - Sinusitis [Recovered/Resolved]
  - Nasopharyngitis [Recovered/Resolved]
  - Upper respiratory tract infection [Unknown]
